FAERS Safety Report 22900441 (Version 2)
Quarter: 2023Q4

REPORT INFORMATION
  Report Type: Spontaneous
  Country: US (occurrence: US)
  Receive Date: 20230904
  Receipt Date: 20231014
  Transmission Date: 20240110
  Serious: Yes (Other)
  Sender: FDA-Public Use
  Company Number: US-TEVA-2023-US-2920697

PATIENT
  Age: 66 Year

DRUGS (5)
  1. RANOLAZINE [Suspect]
     Active Substance: RANOLAZINE
     Indication: Acute myocardial infarction
     Dosage: 1500 MILLIGRAM DAILY; 500MG A.M. AND 1000 MG P.M.
     Route: 065
     Dates: start: 20190910, end: 20200331
  2. RANOLAZINE [Suspect]
     Active Substance: RANOLAZINE
     Dosage: 1000 MG AM + 500 MG PM)
     Route: 065
     Dates: start: 20190415, end: 20190910
  3. ATORVASTATIN [Concomitant]
     Active Substance: ATORVASTATIN
     Indication: Product used for unknown indication
     Dosage: 30 MILLIGRAM DAILY;
  4. ASPIRIN [Concomitant]
     Active Substance: ASPIRIN
     Indication: Product used for unknown indication
     Dosage: 81 MILLIGRAM DAILY;
  5. FAMOTIDINE [Concomitant]
     Active Substance: FAMOTIDINE
     Indication: Product used for unknown indication
     Dosage: 20 MILLIGRAM DAILY;

REACTIONS (11)
  - Angina pectoris [Recovered/Resolved]
  - Dizziness [Unknown]
  - Vision blurred [Recovered/Resolved]
  - Headache [Recovered/Resolved]
  - Dry mouth [Recovered/Resolved]
  - Malaise [Recovered/Resolved]
  - Nightmare [Recovered/Resolved]
  - Musculoskeletal stiffness [Unknown]
  - Product dose omission issue [Unknown]
  - Illness [Recovered/Resolved]
  - Nausea [Recovered/Resolved]

NARRATIVE: CASE EVENT DATE: 20190101
